FAERS Safety Report 21063529 (Version 4)
Quarter: 2022Q4

REPORT INFORMATION
  Report Type: Report from Study
  Country: US (occurrence: US)
  Receive Date: 20220711
  Receipt Date: 20221221
  Transmission Date: 20230113
  Serious: No
  Sender: FDA-Public Use
  Company Number: US-NOVARTISTESTPH-NVSC2022US155835

PATIENT
  Sex: Female

DRUGS (1)
  1. PIQRAY [Suspect]
     Active Substance: ALPELISIB
     Indication: Product used for unknown indication
     Dosage: UNK
     Route: 048

REACTIONS (9)
  - Renal function test abnormal [Unknown]
  - Blood urine present [Unknown]
  - Glomerular filtration rate decreased [Unknown]
  - Oral pain [Unknown]
  - Tumour marker increased [Unknown]
  - Blood creatinine increased [Unknown]
  - Fatigue [Unknown]
  - Decreased appetite [Unknown]
  - Disease progression [Unknown]
